FAERS Safety Report 6255567-8 (Version None)
Quarter: 2009Q2

REPORT INFORMATION
  Report Type: 
  Country: None (occurrence: None)
  Receive Date: 20090630
  Receipt Date: 20090616
  Transmission Date: 20091009
  Serious: Yes (Hospitalization)
  Sender: FDA-Public Use
  Company Number: 220004K09AUS

PATIENT
  Age: 4 Year
  Sex: Female

DRUGS (3)
  1. SAIZEN [Suspect]
     Indication: TURNER'S SYNDROME
     Dosage: 2.8 MG, 1 IN 1 WEEKS, SUBCUTANEOUS, 1 MG, 6 IN 1 WEEKS, SUBCUTANEOUS
     Route: 058
     Dates: start: 20080422, end: 20090226
  2. SAIZEN [Suspect]
     Indication: TURNER'S SYNDROME
     Dosage: 2.8 MG, 1 IN 1 WEEKS, SUBCUTANEOUS, 1 MG, 6 IN 1 WEEKS, SUBCUTANEOUS
     Route: 058
     Dates: start: 20090226, end: 20090601
  3. SAIZEN [Suspect]
     Indication: TURNER'S SYNDROME
     Dosage: 2.8 MG, 1 IN 1 WEEKS, SUBCUTANEOUS, 1 MG, 6 IN 1 WEEKS, SUBCUTANEOUS
     Route: 058
     Dates: start: 20090601

REACTIONS (2)
  - CROUP INFECTIOUS [None]
  - TONSILLAR HYPERTROPHY [None]
